FAERS Safety Report 5524808-4 (Version None)
Quarter: 2007Q4

REPORT INFORMATION
  Report Type: 
  Country: None (occurrence: None)
  Receive Date: 20071116
  Receipt Date: 20071101
  Transmission Date: 20080405
  Serious: Yes (Other)
  Sender: FDA-Public Use
  Company Number: 163667ISR

PATIENT
  Age: 42 Year
  Sex: Female

DRUGS (1)
  1. IPRATROPIUM BROMIDE [Suspect]
     Indication: RESPIRATORY THERAPY
     Dosage: RESPIRATORY (INHALATION)
     Route: 055

REACTIONS (1)
  - PUPILS UNEQUAL [None]
